FAERS Safety Report 13931031 (Version 1)
Quarter: 2017Q3

REPORT INFORMATION
  Report Type: Report from Study
  Country: IT (occurrence: IT)
  Receive Date: 20170902
  Receipt Date: 20170902
  Transmission Date: 20171127
  Serious: Yes (Life-Threatening, Other)
  Sender: FDA-Public Use
  Company Number: IT-ACCORD-057849

PATIENT
  Sex: Female

DRUGS (15)
  1. CARBOPLATIN. [Suspect]
     Active Substance: CARBOPLATIN
     Indication: PRODUCT USED FOR UNKNOWN INDICATION
  2. CAELYX [Concomitant]
     Active Substance: DOXORUBICIN HYDROCHLORIDE
  3. TAXOL [Suspect]
     Active Substance: PACLITAXEL
     Indication: PRODUCT USED FOR UNKNOWN INDICATION
     Dates: start: 20111209, end: 20120504
  4. KADCYLA [Suspect]
     Active Substance: ADO-TRASTUZUMAB EMTANSINE
     Indication: BREAST CANCER METASTATIC
  5. EXEMESTANE. [Concomitant]
     Active Substance: EXEMESTANE
  6. FASLODEX [Concomitant]
     Active Substance: FULVESTRANT
     Dosage: 1 VIAL
     Route: 030
     Dates: start: 20120508
  7. ZOMETA [Concomitant]
     Active Substance: ZOLEDRONIC ACID
     Dates: start: 20130616
  8. ESTRAMUSTINE/ESTRAMUSTINE MEGLUMINE PHOSPHA/ESTRAMUSTINE PHOSPHATE/ESTRAMUSTINE PHOSPHATE SODIUM [Concomitant]
  9. TAXOTERE [Suspect]
     Active Substance: DOCETAXEL
     Indication: BREAST CANCER
     Dates: start: 20150930, end: 20151101
  10. HERCEPTIN [Suspect]
     Active Substance: TRASTUZUMAB
     Indication: BREAST CANCER METASTATIC
     Dates: start: 20150903
  11. XELODA [Suspect]
     Active Substance: CAPECITABINE
     Indication: BREAST CANCER
     Dosage: 1000 MG/M^2 DAILY FOR 14 DAYS EVERY 21 DAYS
     Route: 048
     Dates: start: 20130522, end: 20150308
  12. VINORELBINE [Concomitant]
     Active Substance: VINORELBINE\VINORELBINE TARTRATE
  13. MEGESTROL [Concomitant]
     Active Substance: MEGESTROL
  14. ERIBULIN [Concomitant]
     Active Substance: ERIBULIN
     Dosage: 0.97 MG/M^2, 3 CYCLES
     Dates: start: 20160531
  15. PERTUZUMAB. [Suspect]
     Active Substance: PERTUZUMAB
     Indication: BREAST CANCER METASTATIC
     Dates: start: 20150930, end: 20151101

REACTIONS (7)
  - Palmar-plantar erythrodysaesthesia syndrome [Unknown]
  - Neutropenia [Unknown]
  - Pain in extremity [Unknown]
  - Diarrhoea [Unknown]
  - Drug ineffective [Unknown]
  - Epistaxis [Unknown]
  - Osteonecrosis of jaw [Unknown]

NARRATIVE: CASE EVENT DATE: 201407
